FAERS Safety Report 18939750 (Version 2)
Quarter: 2021Q2

REPORT INFORMATION
  Report Type: Report from Study
  Country: GB (occurrence: GB)
  Receive Date: 20210224
  Receipt Date: 20210427
  Transmission Date: 20210717
  Serious: Yes (Other)
  Sender: FDA-Public Use
  Company Number: GB-JNJFOC-20210234903

PATIENT
  Age: 6 Decade
  Sex: Female

DRUGS (2)
  1. STELARA [Suspect]
     Active Substance: USTEKINUMAB
  2. STELARA [Suspect]
     Active Substance: USTEKINUMAB
     Indication: CROHN^S DISEASE
     Route: 058

REACTIONS (11)
  - Arrhythmia [Not Recovered/Not Resolved]
  - Sleep disorder [Unknown]
  - Pouchitis [Unknown]
  - Crohn^s disease [Unknown]
  - Pain in extremity [Unknown]
  - Abdominal hernia [Unknown]
  - Hypersensitivity [Unknown]
  - Feeling hot [Unknown]
  - Fatigue [Unknown]
  - Migraine [Unknown]
  - Infusion related reaction [Unknown]

NARRATIVE: CASE EVENT DATE: 202009
